FAERS Safety Report 12578171 (Version 2)
Quarter: 2016Q4

REPORT INFORMATION
  Report Type: Spontaneous
  Country: US (occurrence: US)
  Receive Date: 20160721
  Receipt Date: 20161012
  Transmission Date: 20170207
  Serious: No
  Sender: FDA-Public Use
  Company Number: US-TEVA-672326USA

PATIENT
  Age: 62 Year
  Sex: Female

DRUGS (6)
  1. DULOXETIN [Concomitant]
     Active Substance: DULOXETINE
  2. LEVOTHYROXINE. [Concomitant]
     Active Substance: LEVOTHYROXINE
  3. HYDROCHLOROTHIA [Concomitant]
  4. LISINOPRIL. [Concomitant]
     Active Substance: LISINOPRIL
  5. GABAPENTIN. [Concomitant]
     Active Substance: GABAPENTIN
  6. ZECUITY [Suspect]
     Active Substance: SUMATRIPTAN SUCCINATE
     Indication: HEADACHE
     Route: 062
     Dates: start: 20160620, end: 20160620

REACTIONS (10)
  - Application site urticaria [Recovered/Resolved]
  - Nausea [Not Recovered/Not Resolved]
  - Application site rash [Recovered/Resolved]
  - Drug ineffective [Unknown]
  - Application site pruritus [Recovered/Resolved]
  - Application site discolouration [Recovered/Resolved]
  - Application site papules [Recovered/Resolved]
  - Application site irritation [Recovered/Resolved]
  - Application site erythema [Recovered/Resolved]
  - Migraine [Not Recovered/Not Resolved]

NARRATIVE: CASE EVENT DATE: 20160620
